FAERS Safety Report 11435075 (Version 6)
Quarter: 2016Q2

REPORT INFORMATION
  Report Type: Report from Study
  Country: US (occurrence: US)
  Receive Date: 20150831
  Receipt Date: 20160502
  Transmission Date: 20160815
  Serious: No
  Sender: FDA-Public Use
  Company Number: ADR-2015-01458

PATIENT
  Sex: Male

DRUGS (19)
  1. BUPIVACAINE. [Suspect]
     Active Substance: BUPIVACAINE
     Dosage: 3.454 MG/DAY
     Route: 037
  2. BUPIVACAINE. [Suspect]
     Active Substance: BUPIVACAINE
     Dosage: 3.454 MG/DAY
     Route: 037
  3. COMPOUNDED BACLOFEN [Suspect]
     Active Substance: BACLOFEN
     Dosage: 110.0 MCG/DAY
     Route: 037
  4. BUPIVACAINE. [Suspect]
     Active Substance: BUPIVACAINE
     Dosage: 2.942 MG/DAY
     Route: 037
     Dates: start: 20151022
  5. COMPOUNDED BACLOFEN [Suspect]
     Active Substance: BACLOFEN
     Dosage: 110 MCG/DAY
     Route: 037
  6. LIORESAL [Suspect]
     Active Substance: BACLOFEN
     Dosage: 93.39 MCG/DAY
     Route: 037
  7. BACLOFEN. [Suspect]
     Active Substance: BACLOFEN
     Dosage: 115.1 MCG/DAY
     Route: 037
  8. HYDROMORPHONE [Suspect]
     Active Substance: HYDROMORPHONE
     Dosage: 54.98 MCG/DAY
     Route: 037
     Dates: start: 20140826, end: 20141123
  9. BACLOFEN. [Suspect]
     Active Substance: BACLOFEN
     Dosage: 98.1 MCG/DAY
     Route: 037
     Dates: start: 20151022
  10. MORPHINE [Suspect]
     Active Substance: MORPHINE
     Dosage: 199.7MCG/DAY
     Route: 037
     Dates: end: 20140602
  11. BACLOFEN ORAL [Suspect]
     Active Substance: BACLOFEN
     Route: 048
  12. LYRICA [Suspect]
     Active Substance: PREGABALIN
     Route: 048
  13. MORPHINE SULFATE. [Suspect]
     Active Substance: MORPHINE SULFATE
     Dosage: 199.7MCG/DAY
     Route: 037
     Dates: start: 20140512
  14. LIORESAL [Suspect]
     Active Substance: BACLOFEN
     Dosage: 99.9 MCG/DAY
     Route: 037
  15. LIORESAL [Suspect]
     Active Substance: BACLOFEN
     Dosage: 109.97 MCG/DAY
     Route: 037
     Dates: start: 20140429
  16. MORPHINE SULFATE. [Suspect]
     Active Substance: MORPHINE SULFATE
     Dosage: 199.7MCG/DAY
     Route: 037
     Dates: start: 20140516
  17. BUPIVACAINE. [Suspect]
     Active Substance: BUPIVACAINE
     Route: 037
     Dates: start: 20151221
  18. HYDROMORPHONE [Suspect]
     Active Substance: HYDROMORPHONE
     Dosage: 54.98 MCG/DAY
     Route: 037
     Dates: start: 20141119, end: 20141125
  19. COMPOUNDED BACLOFEN [Suspect]
     Active Substance: BACLOFEN
     Dosage: 90 MCG/DAY
     Route: 037
     Dates: start: 20141125

REACTIONS (19)
  - Vomiting [Not Recovered/Not Resolved]
  - Gait disturbance [Not Recovered/Not Resolved]
  - Dizziness [Not Recovered/Not Resolved]
  - Hyperhidrosis [Not Recovered/Not Resolved]
  - Urinary retention [Not Recovered/Not Resolved]
  - No therapeutic response [Not Recovered/Not Resolved]
  - Chills [Not Recovered/Not Resolved]
  - Pain in extremity [Not Recovered/Not Resolved]
  - Adverse drug reaction [Not Recovered/Not Resolved]
  - Asthenia [Not Recovered/Not Resolved]
  - Pain [Not Recovered/Not Resolved]
  - Muscle spasms [Not Recovered/Not Resolved]
  - Muscular weakness [Not Recovered/Not Resolved]
  - Muscle spasticity [Not Recovered/Not Resolved]
  - Muscle tightness [Not Recovered/Not Resolved]
  - Arthralgia [Not Recovered/Not Resolved]
  - Nausea [Not Recovered/Not Resolved]
  - Pyrexia [Not Recovered/Not Resolved]
  - Burning sensation [Not Recovered/Not Resolved]
